FAERS Safety Report 10061748 (Version 1)
Quarter: 2014Q2

REPORT INFORMATION
  Report Type: Spontaneous
  Country: PR (occurrence: PR)
  Receive Date: 20140407
  Receipt Date: 20140407
  Transmission Date: 20141212
  Serious: Yes (Hospitalization)
  Sender: FDA-Public Use
  Company Number: PR-BIOGENIDEC-2014BI029412

PATIENT
  Sex: Male

DRUGS (6)
  1. TYSABRI [Suspect]
     Indication: MULTIPLE SCLEROSIS
     Route: 042
  2. TYSABRI [Suspect]
     Indication: MULTIPLE SCLEROSIS
     Route: 042
     Dates: start: 20110303
  3. BACLOFEN [Concomitant]
  4. BACLOFEN [Concomitant]
  5. ZOLOFT [Concomitant]
  6. ZOLOFT [Concomitant]

REACTIONS (6)
  - Aphagia [Not Recovered/Not Resolved]
  - Convulsion [Recovered/Resolved]
  - Dehydration [Recovered/Resolved]
  - Hypotension [Recovered/Resolved]
  - Dysphagia [Not Recovered/Not Resolved]
  - Hypersomnia [Unknown]
